FAERS Safety Report 8337105-9 (Version None)
Quarter: 2012Q2

REPORT INFORMATION
  Report Type: 
  Country: None (occurrence: None)
  Receive Date: 20120504
  Receipt Date: 20120430
  Transmission Date: 20120825
  Serious: Yes (Hospitalization)
  Sender: FDA-Public Use
  Company Number: PHFR2012GB000959

PATIENT
  Sex: Male

DRUGS (2)
  1. CLOZARIL [Suspect]
     Indication: SCHIZOPHRENIA
     Dosage: 900 MG DAILY
     Route: 048
     Dates: start: 19981221
  2. CLOZARIL [Suspect]
     Dosage: 900 MG, DAILY
     Route: 048
     Dates: start: 20010701

REACTIONS (1)
  - SELF INJURIOUS BEHAVIOUR [None]
